FAERS Safety Report 18154699 (Version 2)
Quarter: 2021Q2

REPORT INFORMATION
  Report Type: Spontaneous
  Country: CA (occurrence: CA)
  Receive Date: 20200817
  Receipt Date: 20210512
  Transmission Date: 20210717
  Serious: Yes (Other)
  Sender: FDA-Public Use
  Company Number: CA-ACCORD-195159

PATIENT
  Age: 53 Year
  Sex: Female

DRUGS (29)
  1. FOSAVANCE [Suspect]
     Active Substance: ALENDRONATE SODIUM\CHOLECALCIFEROL
     Indication: OSTEOPOROSIS POSTMENOPAUSAL
     Dosage: 1 EVERY 1 WEEKS
  2. MOXIFLOXACIN/MOXIFLOXACIN HYDROCHLORIDE [Suspect]
     Active Substance: MOXIFLOXACIN
     Indication: RASH
  3. CODEINE PHOSPHATE/PARACETAMOL [Suspect]
     Active Substance: ACETAMINOPHEN\CODEINE PHOSPHATE
     Indication: PRURITUS
  4. GLYCERYL TRINITRATE [Suspect]
     Active Substance: NITROGLYCERIN
     Indication: OESOPHAGEAL SPASM
  5. MACROBID [Suspect]
     Active Substance: NITROFURANTOIN\NITROFURANTOIN MONOHYDRATE
     Indication: CYSTITIS
  6. SENOKOT [Suspect]
     Active Substance: SENNOSIDES
     Indication: ABDOMINAL PAIN
  7. CLOPIDOGREL [Suspect]
     Active Substance: CLOPIDOGREL BISULFATE
     Indication: ANTICOAGULANT THERAPY
     Dosage: 1 EVERY 1 DAYS
  8. KETAMINE [Suspect]
     Active Substance: KETAMINE
     Indication: HALLUCINATION
  9. NAPROXEN. [Suspect]
     Active Substance: NAPROXEN
     Indication: PRURITUS
  10. SPIRIVA [Suspect]
     Active Substance: TIOTROPIUM BROMIDE MONOHYDRATE
     Indication: PRODUCT USED FOR UNKNOWN INDICATION
  11. VIOXX [Suspect]
     Active Substance: ROFECOXIB
     Indication: URTICARIA
  12. PREDNISONE. [Suspect]
     Active Substance: PREDNISONE
     Indication: PRODUCT USED FOR UNKNOWN INDICATION
  13. AMITRIPTYLINE [Suspect]
     Active Substance: AMITRIPTYLINE
     Indication: DEPRESSION
  14. SULFATRIM [Suspect]
     Active Substance: SULFAMETHOXAZOLE\TRIMETHOPRIM
     Indication: STOMATITIS
  15. SALBUTAMOL [Suspect]
     Active Substance: ALBUTEROL
     Indication: PRODUCT USED FOR UNKNOWN INDICATION
  16. ATROVENT HFA [Suspect]
     Active Substance: IPRATROPIUM BROMIDE
     Indication: PRODUCT USED FOR UNKNOWN INDICATION
     Dosage: METERED?DOSE (AEROSOL)
  17. CIPROFLOXACIN. [Suspect]
     Active Substance: CIPROFLOXACIN
     Indication: URTICARIA
  18. COVERSYL [Suspect]
     Active Substance: PERINDOPRIL
     Indication: BLOOD PRESSURE MEASUREMENT
     Dosage: 1 EVERY 1 DAYS
  19. CYMBALTA [Suspect]
     Active Substance: DULOXETINE HYDROCHLORIDE
     Indication: DEPRESSION
     Dosage: 1 EVERY 1 DAYS
  20. INDOMETACIN [Suspect]
     Active Substance: INDOMETHACIN
     Indication: VOMITING
  21. GABAPENTIN. [Suspect]
     Active Substance: GABAPENTIN
     Indication: PRODUCT USED FOR UNKNOWN INDICATION
  22. BUPROPION/BUPROPION HYDROCHLORIDE [Suspect]
     Active Substance: BUPROPION HYDROCHLORIDE
     Indication: URTICARIA
  23. FUROSEMIDE. [Suspect]
     Active Substance: FUROSEMIDE
     Indication: FLUID RETENTION
  24. CEFUROXIME AXETIL. [Suspect]
     Active Substance: CEFUROXIME AXETIL
     Indication: MALAISE
  25. CELEBREX [Suspect]
     Active Substance: CELECOXIB
     Indication: OESOPHAGEAL PAIN
  26. GRAVOL [Suspect]
     Active Substance: DIMENHYDRINATE
     Indication: ANXIETY
  27. IRON [Suspect]
     Active Substance: IRON
     Indication: IRON DEFICIENCY
  28. BENZYLPENICILLIN [Suspect]
     Active Substance: PENICILLIN G
     Indication: PRODUCT USED FOR UNKNOWN INDICATION
  29. POTASSIUM [Suspect]
     Active Substance: POTASSIUM
     Indication: PRODUCT USED FOR UNKNOWN INDICATION
     Dosage: 3 EVERY 1 DAYS

REACTIONS (29)
  - Fibromyalgia [Unknown]
  - Lymphoedema [Unknown]
  - Vomiting [Unknown]
  - Hallucination [Unknown]
  - Myocardial infarction [Unknown]
  - Pneumonia [Unknown]
  - Stomatitis [Unknown]
  - Agitation [Unknown]
  - Anxiety [Unknown]
  - Cystitis [Unknown]
  - Fatigue [Unknown]
  - Migraine [Unknown]
  - Sleep apnoea syndrome [Unknown]
  - Oesophageal pain [Unknown]
  - Diarrhoea [Unknown]
  - Malaise [Unknown]
  - Oesophageal spasm [Unknown]
  - Pruritus [Unknown]
  - Tinnitus [Unknown]
  - Urticaria [Unknown]
  - Depression [Unknown]
  - Fluid retention [Unknown]
  - Rash [Unknown]
  - Abdominal pain [Unknown]
  - Bronchitis [Unknown]
  - Dizziness [Unknown]
  - Feeling abnormal [Unknown]
  - Hyperhidrosis [Unknown]
  - Vision blurred [Unknown]
